FAERS Safety Report 5354183-X (Version None)
Quarter: 2007Q2

REPORT INFORMATION
  Report Type: 
  Country: None (occurrence: None)
  Receive Date: 20070612
  Receipt Date: 20070606
  Transmission Date: 20071010
  Serious: Yes (Hospitalization)
  Sender: FDA-Public Use
  Company Number: CA-ASTRAZENECA-2006UW19919

PATIENT
  Age: 43 Year
  Sex: Female

DRUGS (6)
  1. SEROQUEL [Suspect]
     Indication: BIPOLAR II DISORDER
     Route: 048
  2. SEROQUEL [Suspect]
     Dosage: 50MG QAM AND 75MG QHS
     Route: 048
  3. NORTRIPTYLINE HCL [Concomitant]
  4. LITHIUM CARBONATE [Concomitant]
  5. LAMOTRIGINE [Concomitant]
  6. EFFEXOR [Concomitant]
     Dates: start: 20070201

REACTIONS (8)
  - AGITATION [None]
  - BRUXISM [None]
  - CRYING [None]
  - DEPRESSION [None]
  - INTERVERTEBRAL DISC PROTRUSION [None]
  - IRRITABILITY [None]
  - SOMNOLENCE [None]
  - WEIGHT INCREASED [None]
